FAERS Safety Report 7176919-8 (Version None)
Quarter: 2010Q4

REPORT INFORMATION
  Report Type: 
  Country: None (occurrence: None)
  Receive Date: 20101220
  Receipt Date: 20101215
  Transmission Date: 20110411
  Serious: Yes (Hospitalization, Other)
  Sender: FDA-Public Use
  Company Number: US-AMGEN-USASP2010009523

PATIENT

DRUGS (2)
  1. ENBREL [Suspect]
     Indication: PSORIATIC ARTHROPATHY
     Dates: start: 20051101
  2. ENBREL [Suspect]
     Indication: PSORIASIS

REACTIONS (8)
  - BLADDER OBSTRUCTION [None]
  - HAEMATURIA [None]
  - LIMB INJURY [None]
  - NEUROPATHY PERIPHERAL [None]
  - PSORIATIC ARTHROPATHY [None]
  - STAPHYLOCOCCAL INFECTION [None]
  - TRANSURETHRAL PROSTATECTOMY [None]
  - URINARY TRACT INFECTION [None]
